FAERS Safety Report 8906930 (Version 1)
Quarter: 2012Q4

REPORT INFORMATION
  Report Type: 
  Country: SY (occurrence: SY)
  Receive Date: 20121114
  Receipt Date: 20121114
  Transmission Date: 20130627
  Serious: Yes (Other)
  Sender: FDA-Public Use
  Company Number: SY-JNJFOC-20121102692

PATIENT
  Age: 35 Year
  Sex: Female
  Weight: 70 kg

DRUGS (5)
  1. INVEGA SUSTENNA [Suspect]
     Indication: SCHIZOAFFECTIVE DISORDER
     Route: 030
  2. INVEGA SUSTENNA [Suspect]
     Indication: SCHIZOAFFECTIVE DISORDER
     Route: 030
     Dates: start: 20121023
  3. DEPAKINE CHRONO [Concomitant]
     Indication: DRUG THERAPY
     Route: 065
     Dates: start: 201210
  4. OLANZAPINE [Concomitant]
     Indication: PSYCHOTIC DISORDER
     Route: 065
     Dates: start: 201209
  5. LITHIUM CARBONATE [Concomitant]
     Indication: DRUG THERAPY
     Route: 065
     Dates: start: 2011

REACTIONS (4)
  - Substance abuse [Unknown]
  - Psychomotor hyperactivity [Unknown]
  - Paranoia [Unknown]
  - Off label use [Unknown]
